FAERS Safety Report 20055082 (Version 1)
Quarter: 2021Q4

REPORT INFORMATION
  Report Type: Spontaneous
  Country: US (occurrence: None)
  Receive Date: 20211110
  Receipt Date: 20211110
  Transmission Date: 20220303
  Serious: Yes (Hospitalization)
  Sender: FDA-Public Use
  Company Number: None

PATIENT
  Age: 62 Year
  Sex: Female
  Weight: 69.93 kg

DRUGS (1)
  1. HYCAMTIN [Suspect]
     Active Substance: TOPOTECAN HYDROCHLORIDE
     Indication: Neoplasm
     Dosage: FREQUENCY : DAILY;?
     Route: 048
     Dates: start: 20210929, end: 20211110

REACTIONS (1)
  - Hospice care [None]

NARRATIVE: CASE EVENT DATE: 20211109
